FAERS Safety Report 5505034-1 (Version None)
Quarter: 2007Q4

REPORT INFORMATION
  Report Type: 
  Country: None (occurrence: None)
  Receive Date: 20071102
  Receipt Date: 20071022
  Transmission Date: 20080405
  Serious: Yes (Death, Other)
  Sender: FDA-Public Use
  Company Number: CN-ROCHE-527063

PATIENT
  Age: 50 Year
  Sex: Male
  Weight: 67 kg

DRUGS (2)
  1. PEGASYS [Suspect]
     Indication: HEPATITIS C
     Dosage: OTHER INDICATION REPORTED AS LIVER CIRRHOSIS
     Route: 058
     Dates: start: 20070801, end: 20071010
  2. RIBAVIRIN [Concomitant]
     Indication: HEPATITIS C
     Dosage: OTHER INDICATION REPORTED AS LIVER CIRRHOSIS
     Route: 048
     Dates: start: 20070801, end: 20071019

REACTIONS (7)
  - ABDOMINAL DISTENSION [None]
  - CARDIAC FAILURE [None]
  - COMA [None]
  - HAEMOPTYSIS [None]
  - JAUNDICE [None]
  - LUNG INFECTION [None]
  - RESPIRATORY FAILURE [None]
